FAERS Safety Report 4885693-7 (Version None)
Quarter: 2005Q4

REPORT INFORMATION
  Report Type: 
  Country: None (occurrence: None)
  Receive Date: 20051220
  Receipt Date: 20050831
  Transmission Date: 20060501
  Serious: Yes (Other)
  Sender: FDA-Public Use
  Company Number: HQWYE282407SEP05

PATIENT
  Age: 36 Year
  Sex: Female
  Weight: 59.93 kg

DRUGS (4)
  1. EFFEXOR XR [Suspect]
     Dosage: SEE IMAGE
     Dates: start: 19990101
  2. HYZAAR [Concomitant]
  3. WELLBUTRIN XL [Concomitant]
  4. HYDROCHLOROTHIAZIDE (HYDROCHOROTHIAZDE) [Concomitant]

REACTIONS (14)
  - CHEST DISCOMFORT [None]
  - CONDITION AGGRAVATED [None]
  - COUGH [None]
  - DECREASED APPETITE [None]
  - DISTURBANCE IN ATTENTION [None]
  - DRUG INEFFECTIVE [None]
  - DRUG WITHDRAWAL SYNDROME [None]
  - HEADACHE [None]
  - HYPERTENSION [None]
  - PALPITATIONS [None]
  - PULMONARY CONGESTION [None]
  - PYREXIA [None]
  - SINUS TACHYCARDIA [None]
  - WEIGHT DECREASED [None]
